FAERS Safety Report 9196381 (Version 1)
Quarter: 2013Q1

REPORT INFORMATION
  Report Type: Spontaneous
  Country: US (occurrence: None)
  Receive Date: 20120709
  Receipt Date: 20120709
  Transmission Date: 20140127
  Serious: Yes (Hospitalization)
  Sender: FDA-Public Use
  Company Number: 2012HGS-003715

PATIENT
  Age: 52 Year
  Sex: Female
  Weight: 66.68 kg

DRUGS (10)
  1. BENLYSTA [Suspect]
     Indication: SYSTEMIC LUPUS ERYTHEMATOSUS
     Dosage: 1 IN 28 D, INTRAVENOUS DRIP
     Route: 041
     Dates: start: 20120429
  2. MYCOPHENOLATE (MYCOPHENOLATE MOFETIL) (MYCOPHENOLATE MOFETIL) [Concomitant]
  3. MELOXICAM (MELOXICAM) (MELOXICM) [Concomitant]
  4. DAPSONE (DAPSONE) (DAPSONE) [Concomitant]
  5. SINGULAIR [Concomitant]
  6. CLARITIN (LORATADINE) (LORATADINE) [Concomitant]
  7. ALBUTEROL INHALER (SALBUTAMOL) (SALBUTAMOL) [Concomitant]
  8. DEXAMETHASONE INHALER (DEXAMETHASONE) (DEXAMETHASONE) [Concomitant]
  9. FLUCONAZOLE (FLUCONAZOLE) (FLUCONAZOLE) [Concomitant]
  10. TRAZODONE (TRAZODONE) (TRAZODONE) [Concomitant]

REACTIONS (6)
  - Upper respiratory tract infection [None]
  - Wheezing [None]
  - Productive cough [None]
  - Dyspnoea [None]
  - Pyrexia [None]
  - Headache [None]
